FAERS Safety Report 5970643-2 (Version None)
Quarter: 2008Q4

REPORT INFORMATION
  Report Type: 
  Country: None (occurrence: None)
  Receive Date: 20081126
  Receipt Date: 20081104
  Transmission Date: 20090506
  Serious: No
  Sender: FDA-Public Use
  Company Number: US-ABBOTT-08P-163-0485810-00

PATIENT
  Sex: Female

DRUGS (9)
  1. SIMCOR [Suspect]
     Indication: BLOOD TRIGLYCERIDES INCREASED
     Dosage: 500/20MG
     Route: 048
     Dates: start: 20080901, end: 20081001
  2. SIMCOR [Suspect]
     Dosage: 750MG/20MG
     Dates: start: 20081001
  3. SIMCOR [Suspect]
     Dosage: NIASPAN
     Dates: start: 20080501, end: 20080901
  4. IBUPROFEN TABLETS [Concomitant]
     Indication: DRUG USE FOR UNKNOWN INDICATION
     Route: 048
  5. CLOPIDOGREL [Concomitant]
     Indication: DRUG USE FOR UNKNOWN INDICATION
     Route: 048
  6. OMEPRAZOLE MAGNESIUM [Concomitant]
     Indication: DRUG USE FOR UNKNOWN INDICATION
     Route: 048
  7. UNKNOWN MEDICATION [Concomitant]
     Indication: GASTRIC DISORDER
     Route: 048
  8. UNKNOWN MEDICATION [Concomitant]
     Indication: BLOOD PRESSURE
     Route: 048
  9. UNKNOWN MEDICATION [Concomitant]
     Route: 048

REACTIONS (4)
  - FEELING HOT [None]
  - FLUSHING [None]
  - PARAESTHESIA [None]
  - PRURITUS [None]
